FAERS Safety Report 8537262-5 (Version None)
Quarter: 2012Q3

REPORT INFORMATION
  Report Type: 
  Country: None (occurrence: None)
  Receive Date: 20120725
  Receipt Date: 20120719
  Transmission Date: 20120928
  Serious: Yes (Life-Threatening)
  Sender: FDA-Public Use
  Company Number: JP-PFIZER INC-2012155165

PATIENT
  Age: 70 Year
  Sex: Male

DRUGS (4)
  1. ZITHROMAX [Suspect]
     Indication: PNEUMONIA
     Dosage: 500 MG, 1X/DAY
     Route: 041
     Dates: start: 20120618, end: 20120622
  2. CIPROFLOXACIN [Concomitant]
     Indication: PNEUMONIA
     Dosage: 600 MG, 1X/DAY
     Route: 041
     Dates: start: 20120613, end: 20120616
  3. CEFEPIME [Concomitant]
     Indication: PNEUMONIA
     Dosage: 2 G, 1X/DAY
     Route: 041
     Dates: start: 20120617, end: 20120626
  4. CEFTRIAXONE [Concomitant]
     Indication: PNEUMONIA
     Dosage: 1 G, 1X/DAY
     Route: 041
     Dates: start: 20120609, end: 20120613

REACTIONS (1)
  - CARDIAC ARREST [None]
